FAERS Safety Report 4358619-2 (Version None)
Quarter: 2004Q2

REPORT INFORMATION
  Report Type: 
  Country: None (occurrence: None)
  Receive Date: 20040512
  Receipt Date: 20040512
  Transmission Date: 20050107
  Serious: Yes (Hospitalization)
  Sender: FDA-Public Use
  Company Number: None

PATIENT
  Age: 67 Year
  Sex: Female
  Weight: 79 kg

DRUGS (7)
  1. MORPHINE [Suspect]
     Indication: PAIN
     Dosage: GIVEN AS PCA
  2. ATENOLOL [Concomitant]
  3. CEFOTAN [Concomitant]
  4. FAMOTEDINE [Concomitant]
  5. ZOFRAN [Concomitant]
  6. SYNTHROID [Concomitant]
  7. ZOLOFT [Concomitant]

REACTIONS (2)
  - OXYGEN SATURATION DECREASED [None]
  - RESPIRATORY DEPRESSION [None]
